FAERS Safety Report 7949888-8 (Version None)
Quarter: 2011Q4

REPORT INFORMATION
  Report Type: 
  Country: None (occurrence: None)
  Receive Date: 20111130
  Receipt Date: 20111122
  Transmission Date: 20120403
  Serious: Yes (Other)
  Sender: FDA-Public Use
  Company Number: SE-PFIZER INC-2011283995

PATIENT
  Age: 47 Year
  Sex: Female

DRUGS (2)
  1. CELEBREX [Suspect]
     Indication: MUSCULOSKELETAL PAIN
     Dosage: 300 MG, DAILY
  2. WARFARIN SODIUM [Concomitant]
     Dosage: UNK

REACTIONS (4)
  - MYOCARDIAL INFARCTION [None]
  - PROTHROMBIN LEVEL DECREASED [None]
  - HEART VALVE OPERATION [None]
  - EMBOLISM [None]
